FAERS Safety Report 7961334-7 (Version None)
Quarter: 2011Q4

REPORT INFORMATION
  Report Type: 
  Country: None (occurrence: None)
  Receive Date: 20111207
  Receipt Date: 20110505
  Transmission Date: 20120403
  Serious: Yes (Death)
  Sender: FDA-Public Use
  Company Number: US-GENZYME-LEUK-1000110

PATIENT

DRUGS (1)
  1. LEUKINE [Suspect]
     Indication: PROSTATE CANCER
     Dosage: UNK
     Route: 065

REACTIONS (1)
  - DEATH [None]
